FAERS Safety Report 25736506 (Version 2)
Quarter: 2025Q4

REPORT INFORMATION
  Report Type: Report from Study
  Country: US (occurrence: US)
  Receive Date: 20250828
  Receipt Date: 20251001
  Transmission Date: 20260117
  Serious: Yes (Hospitalization)
  Sender: IMMUNOCORE
  Company Number: US-IMMUNOCORE, LTD.-2025-IMC-004042

PATIENT
  Age: 52 Year
  Sex: Male

DRUGS (1)
  1. KIMMTRAK [Suspect]
     Active Substance: TEBENTAFUSP-TEBN
     Indication: Metastatic ocular melanoma
     Dosage: 68 MICROGRAM/ DOSE 3

REACTIONS (12)
  - Blood lactate dehydrogenase increased [Recovered/Resolved]
  - Blood lactic acid increased [Recovered/Resolved]
  - Retching [Recovered/Resolved]
  - White blood cell count increased [Recovered/Resolved]
  - Chills [Recovered/Resolved]
  - Rash maculo-papular [Recovered/Resolved]
  - Nausea [Recovered/Resolved]
  - Body temperature increased [Recovered/Resolved]
  - Abdominal pain [Recovered/Resolved]
  - Blood creatinine increased [Recovered/Resolved]
  - Pruritus [Recovered/Resolved]
  - Erythema [Recovered/Resolved]

NARRATIVE: CASE EVENT DATE: 20250502
